FAERS Safety Report 12757570 (Version 1)
Quarter: 2016Q3

REPORT INFORMATION
  Report Type: Spontaneous
  Country: IR (occurrence: IR)
  Receive Date: 20160919
  Receipt Date: 20160919
  Transmission Date: 20161109
  Serious: Yes (Other)
  Sender: FDA-Public Use
  Company Number: IR-ROCHE-1829384

PATIENT
  Age: 29 Year
  Sex: Female

DRUGS (3)
  1. BEVACIZUMAB [Suspect]
     Active Substance: BEVACIZUMAB
     Indication: CYSTOID MACULAR OEDEMA
     Dosage: 1.25 MG/ 0.05 ML
     Route: 050
  2. NPH INSULIN [Concomitant]
     Active Substance: INSULIN BEEF
     Dosage: 20 UNITS
     Route: 065
  3. REGULAR INSULIN [Concomitant]
     Active Substance: INSULIN NOS
     Dosage: 15 UNITS
     Route: 065

REACTIONS (2)
  - Foetal death [Unknown]
  - Maternal exposure during pregnancy [Unknown]
